FAERS Safety Report 5655604-5 (Version None)
Quarter: 2008Q1

REPORT INFORMATION
  Report Type: 
  Country: None (occurrence: None)
  Receive Date: 20080212
  Receipt Date: 20070824
  Transmission Date: 20080703
  Serious: Yes (Other)
  Sender: FDA-Public Use
  Company Number: MC200700579

PATIENT
  Age: 86 Year
  Sex: Male
  Weight: 61.2 kg

DRUGS (3)
  1. ANGIOMAX [Suspect]
     Indication: PERCUTANEOUS CORONARY INTERVENTION
     Dosage: 0.75 MG/KG, BOLUS, IV BOLUS
     Route: 040
  2. ANGIOMAX [Suspect]
     Dosage: 1.75 MG/KG, HR, INTRAVENOUS
     Route: 042
  3. LOVENOX /00889602/ (HEPARIN-FRACTION, SODIUM SALT) [Concomitant]

REACTIONS (2)
  - HAEMATOMA [None]
  - RETROPERITONEAL HAEMORRHAGE [None]
